FAERS Safety Report 9890657 (Version 2)
Quarter: 2014Q2

REPORT INFORMATION
  Report Type: Spontaneous
  Country: GB (occurrence: None)
  Receive Date: 20140210
  Receipt Date: 20140425
  Transmission Date: 20141212
  Serious: Yes (Disabling, Other)
  Sender: FDA-Public Use
  Company Number: AUR-APL-2014-01160

PATIENT
  Age: 15 Year
  Sex: Female

DRUGS (3)
  1. SERTRALINE (SERTRALINE) [Suspect]
     Indication: DEPRESSION
     Dosage: 1 IN 1 D
     Route: 048
     Dates: start: 20140108, end: 20140113
  2. BIO-MELATONIN (MELATONIN) [Concomitant]
  3. QUETIAPINE (QUETIAPINE) [Concomitant]

REACTIONS (6)
  - Swelling face [None]
  - Lip swelling [None]
  - Mouth ulceration [None]
  - Dysphagia [None]
  - Upper respiratory tract infection [None]
  - Hypersensitivity [None]
